FAERS Safety Report 8299738-8 (Version None)
Quarter: 2012Q2

REPORT INFORMATION
  Report Type: 
  Country: None (occurrence: None)
  Receive Date: 20120419
  Receipt Date: 20120416
  Transmission Date: 20120825
  Serious: Yes (Hospitalization, Disabling)
  Sender: FDA-Public Use
  Company Number: US-MERCK-1110USA01563

PATIENT
  Age: 45 Year
  Sex: Female

DRUGS (1)
  1. FOSAMAX [Suspect]
     Indication: OSTEOPENIA
     Route: 048

REACTIONS (9)
  - TOOTH DISORDER [None]
  - BLOOD CHOLESTEROL INCREASED [None]
  - WRIST FRACTURE [None]
  - DEPRESSION [None]
  - FEMUR FRACTURE [None]
  - ANXIETY [None]
  - PAIN [None]
  - HYPOTHYROIDISM [None]
  - SARCOIDOSIS [None]
